FAERS Safety Report 11785508 (Version 1)
Quarter: 2015Q4

REPORT INFORMATION
  Report Type: Spontaneous
  Country: US (occurrence: US)
  Receive Date: 20151130
  Receipt Date: 20151130
  Transmission Date: 20160305
  Serious: No
  Sender: FDA-Public Use
  Company Number: US-BIOGENIDEC-2015BI156701

PATIENT
  Sex: Female

DRUGS (1)
  1. TECFIDERA [Suspect]
     Active Substance: DIMETHYL FUMARATE
     Indication: MULTIPLE SCLEROSIS
     Dates: start: 20140218, end: 20140313

REACTIONS (4)
  - Onychomadesis [Unknown]
  - Asthenia [Unknown]
  - Alopecia [Unknown]
  - Decreased immune responsiveness [Not Recovered/Not Resolved]
